FAERS Safety Report 8354660-3 (Version None)
Quarter: 2012Q2

REPORT INFORMATION
  Report Type: 
  Country: None (occurrence: None)
  Receive Date: 20120511
  Receipt Date: 20120502
  Transmission Date: 20120825
  Serious: Yes (Hospitalization, Other)
  Sender: FDA-Public Use
  Company Number: US-ASTRAZENECA-2010SE58321

PATIENT
  Age: 80 Year
  Sex: Female

DRUGS (7)
  1. CELEBREX [Concomitant]
  2. NEXIUM [Suspect]
     Route: 048
     Dates: end: 20100401
  3. SYMBICORT [Suspect]
     Dosage: 160/4.5 UG UNKNOWN
     Route: 055
  4. NAPROXEN (ALEVE) [Concomitant]
  5. ALBUTEROL [Concomitant]
  6. VICODIN [Concomitant]
  7. PULMICORT [Concomitant]
     Route: 055

REACTIONS (13)
  - DYSPEPSIA [None]
  - PAIN [None]
  - POLYARTHRITIS [None]
  - EXOSTOSIS [None]
  - ARTHRALGIA [None]
  - INTENTIONAL DRUG MISUSE [None]
  - PNEUMONIA [None]
  - GASTROOESOPHAGEAL REFLUX DISEASE [None]
  - SCIATICA [None]
  - LIGAMENT RUPTURE [None]
  - MALAISE [None]
  - ODYNOPHAGIA [None]
  - ASTHMA [None]
